FAERS Safety Report 5719216-7 (Version None)
Quarter: 2008Q2

REPORT INFORMATION
  Report Type: 
  Country: None (occurrence: None)
  Receive Date: 20080428
  Receipt Date: 20080424
  Transmission Date: 20081010
  Serious: Yes (Life-Threatening, Hospitalization)
  Sender: FDA-Public Use
  Company Number: NO-ELI_LILLY_AND_COMPANY-NO200803006046

PATIENT
  Sex: Female

DRUGS (3)
  1. ZYPREXA [Suspect]
     Indication: SCHIZOPHRENIA
     Dosage: 20 MG, DAILY (1/D)
     Route: 048
     Dates: start: 20060701, end: 20080316
  2. VALLERGAN [Concomitant]
     Indication: SLEEP DISORDER
  3. ZOPICLONE [Concomitant]
     Indication: SLEEP DISORDER

REACTIONS (4)
  - CARDIAC FAILURE [None]
  - DEEP VEIN THROMBOSIS [None]
  - INTRACARDIAC THROMBUS [None]
  - RENAL FAILURE [None]
